FAERS Safety Report 9288989 (Version 2)
Quarter: 2013Q2

REPORT INFORMATION
  Report Type: Spontaneous
  Country: BE (occurrence: BE)
  Receive Date: 20130514
  Receipt Date: 20130607
  Transmission Date: 20140414
  Serious: Yes (Hospitalization, Other)
  Sender: FDA-Public Use
  Company Number: BE-BRISTOL-MYERS SQUIBB COMPANY-18722744

PATIENT
  Age: 37 Year
  Sex: Female

DRUGS (3)
  1. REYATAZ [Suspect]
     Indication: HIV INFECTION
     Route: 048
     Dates: start: 20100730
  2. TRUVADA [Concomitant]
  3. NORVIR [Concomitant]

REACTIONS (3)
  - Nephrolithiasis [Unknown]
  - Hydronephrosis [Unknown]
  - Nephrocalcinosis [Unknown]
